FAERS Safety Report 15507217 (Version 1)
Quarter: 2018Q4

REPORT INFORMATION
  Report Type: Spontaneous
  Country: US (occurrence: US)
  Receive Date: 20181016
  Receipt Date: 20181016
  Transmission Date: 20190205
  Serious: No
  Sender: FDA-Public Use
  Company Number: US-ELI_LILLY_AND_COMPANY-US201810006243

PATIENT
  Sex: Female
  Weight: 100 kg

DRUGS (2)
  1. ADCIRCA [Suspect]
     Active Substance: TADALAFIL
     Indication: PRODUCT USED FOR UNKNOWN INDICATION
     Route: 065
  2. REMODULIN [Suspect]
     Active Substance: TREPROSTINIL
     Indication: PULMONARY ARTERIAL HYPERTENSION
     Dosage: 100 NG/KG/MIN
     Route: 058
     Dates: start: 20150220

REACTIONS (3)
  - Dyspnoea [Unknown]
  - Diarrhoea [Unknown]
  - Productive cough [Unknown]
